FAERS Safety Report 8774051 (Version 1)
Quarter: 2012Q4

REPORT INFORMATION
  Report Type: 
  Country: BR (occurrence: BR)
  Receive Date: 20120908
  Receipt Date: 20120908
  Transmission Date: 20130627
  Serious: Yes (Death, Hospitalization)
  Sender: FDA-Public Use
  Company Number: BR-AMGEN-BRASP2012056142

PATIENT
  Age: 65 Year
  Sex: Female

DRUGS (3)
  1. MIMPARA [Suspect]
     Indication: HYPERPARATHYROIDISM
     Dosage: UNK
     Route: 048
     Dates: start: 201205, end: 20120612
  2. ATENSINA [Concomitant]
     Indication: HYPERTENSION
     Dosage: 100 mg, UNK
     Route: 048
  3. VASOGARD [Concomitant]
     Dosage: 50 mg, UNK
     Route: 048

REACTIONS (2)
  - Hospitalisation [Fatal]
  - Death [Fatal]
